FAERS Safety Report 13802462 (Version 4)
Quarter: 2017Q4

REPORT INFORMATION
  Report Type: Report from Study
  Country: US (occurrence: US)
  Receive Date: 20170728
  Receipt Date: 20171227
  Transmission Date: 20180320
  Serious: No
  Sender: FDA-Public Use
  Company Number: PHEH2017US023332

PATIENT
  Age: 30 Year
  Sex: Female
  Weight: 64.4 kg

DRUGS (4)
  1. PRENATAL [Concomitant]
     Active Substance: VITAMINS
     Indication: PRODUCT USED FOR UNKNOWN INDICATION
     Dosage: UNK UNK, QD (IN THE WEEK OF 40)
     Route: 048
     Dates: start: 201606
  2. VITAMIN D [Concomitant]
     Active Substance: CHOLECALCIFEROL
     Indication: PRODUCT USED FOR UNKNOWN INDICATION
     Dosage: UNK UNK, QD (IN THE WEEK OF 40)
     Route: 048
     Dates: start: 201606
  3. LEVOTHYROXINE. [Concomitant]
     Active Substance: LEVOTHYROXINE
     Indication: PRODUCT USED FOR UNKNOWN INDICATION
     Dosage: 50 UG, QD (IN THE WEEK OF 12 AND 40)
     Route: 048
     Dates: start: 20161213
  4. GILENYA [Suspect]
     Active Substance: FINGOLIMOD HYDROCHLORIDE
     Indication: MULTIPLE SCLEROSIS
     Dosage: 0.5 MG, QD
     Route: 048
     Dates: start: 20110902, end: 20160609

REACTIONS (3)
  - Maternal exposure before pregnancy [Unknown]
  - Normal newborn [Unknown]
  - Delivery [Unknown]

NARRATIVE: CASE EVENT DATE: 201610
